FAERS Safety Report 5621108-9 (Version None)
Quarter: 2008Q1

REPORT INFORMATION
  Report Type: 
  Country: None (occurrence: None)
  Receive Date: 20080114
  Receipt Date: 20070122
  Transmission Date: 20080703
  Serious: Yes (Hospitalization)
  Sender: FDA-Public Use
  Company Number: A03200700587

PATIENT
  Age: 84 Year
  Sex: Female

DRUGS (6)
  1. PLAVIX [Suspect]
     Indication: CEREBROVASCULAR ACCIDENT PROPHYLAXIS
     Dosage: 75 MG QD - ORAL
     Route: 049
     Dates: start: 20060601, end: 20060831
  2. CLOPIDOGREL [Suspect]
     Indication: CEREBROVASCULAR ACCIDENT PROPHYLAXIS
     Dosage: 75 MG QD - ORAL
     Route: 048
     Dates: start: 20060901, end: 20061002
  3. IRBESARTAN [Concomitant]
  4. PANTOPRAZOLE SODIUM [Concomitant]
  5. ESCITALOPRAM OXALATE [Concomitant]
  6. IRON [Concomitant]

REACTIONS (1)
  - SUBDURAL HAEMATOMA [None]
